FAERS Safety Report 4664763-2 (Version None)
Quarter: 2005Q2

REPORT INFORMATION
  Report Type: 
  Country: None (occurrence: None)
  Receive Date: 20050517
  Receipt Date: 20050517
  Transmission Date: 20051028
  Serious: Yes (Life-Threatening, Hospitalization)
  Sender: FDA-Public Use
  Company Number: None

PATIENT
  Age: 54 Year
  Sex: Male
  Weight: 67 kg

DRUGS (4)
  1. SIMVASTATIN [Suspect]
     Indication: BLOOD CHOLESTEROL ABNORMAL
     Dosage: PO QPM
     Route: 048
     Dates: start: 20050314
  2. AMIODARONE HCL [Suspect]
     Indication: ATRIAL FIBRILLATION
     Dosage: PO DAILY
     Route: 048
     Dates: start: 20050307
  3. INDINAVIR 400MG [Suspect]
     Indication: HIV INFECTION
     Dosage: 2 TABS PO BID
     Route: 048
     Dates: start: 20020302
  4. RITONAVIR 33MG/LOPINAVIR [Suspect]
     Indication: HIV INFECTION
     Dosage: 3 CAPS PO BID
     Dates: start: 20020301

REACTIONS (3)
  - DRUG INTERACTION [None]
  - RENAL FAILURE ACUTE [None]
  - RHABDOMYOLYSIS [None]
